FAERS Safety Report 25245367 (Version 1)
Quarter: 2025Q2

REPORT INFORMATION
  Report Type: Spontaneous
  Country: US (occurrence: US)
  Receive Date: 20250428
  Receipt Date: 20250428
  Transmission Date: 20250716
  Serious: Yes (Other)
  Sender: COOPERSURGICAL
  Company Number: US-COOPERSURGICAL, INC.-2025CPS003141

PATIENT
  Age: 40 Year
  Sex: Female
  Weight: 76.19 kg

DRUGS (1)
  1. PARAGARD T 380A [Suspect]
     Active Substance: COPPER
     Indication: Contraception
     Route: 015
     Dates: start: 20110201, end: 20210519

REACTIONS (11)
  - Female reproductive tract disorder [Not Recovered/Not Resolved]
  - Device breakage [Recovered/Resolved]
  - Complication of device removal [Recovered/Resolved]
  - Headache [Recovered/Resolved]
  - Device issue [Recovered/Resolved]
  - Back pain [Recovered/Resolved]
  - Pelvic pain [Recovered/Resolved]
  - Abnormal uterine bleeding [Recovered/Resolved]
  - Abdominal pain [Unknown]
  - Device use issue [Recovered/Resolved]
  - Off label use [Unknown]

NARRATIVE: CASE EVENT DATE: 20200101
